FAERS Safety Report 10073357 (Version 1)
Quarter: 2014Q2

REPORT INFORMATION
  Report Type: Report from Study
  Country: TW (occurrence: TW)
  Receive Date: 20140411
  Receipt Date: 20140411
  Transmission Date: 20141212
  Serious: No
  Sender: FDA-Public Use
  Company Number: PHHY2014TW044202

PATIENT
  Age: 50 Year
  Sex: Female

DRUGS (51)
  1. AMN107 [Suspect]
     Dates: start: 20111015, end: 20120712
  2. AZITHROMYCIN [Concomitant]
     Indication: COUGH
     Dates: start: 20120515, end: 20120529
  3. DIPHENHYDRAMINE [Concomitant]
     Indication: PROPHYLAXIS
     Dates: start: 20120716, end: 20120716
  4. DIPHENHYDRAMINE [Concomitant]
     Dates: start: 20120731, end: 20120731
  5. DIPHENHYDRAMINE [Concomitant]
     Dates: start: 20120804, end: 20120806
  6. DIPHENHYDRAMINE [Concomitant]
     Dates: start: 20120809, end: 20120809
  7. DIPHENHYDRAMINE [Concomitant]
     Dates: start: 20120731, end: 20120731
  8. DIPHENHYDRAMINE [Concomitant]
     Dates: start: 20120809, end: 20120809
  9. FLUCONAZOLE [Concomitant]
     Indication: SEPSIS
     Dates: start: 20120804, end: 20120811
  10. CEFMETAZOLE [Concomitant]
     Indication: PANCREATITIS ACUTE
     Dates: start: 20120716, end: 20120722
  11. CEFMETAZOLE [Concomitant]
     Dosage: UNK
  12. ACETAMINOPHEN [Concomitant]
     Indication: HEADACHE
     Dates: start: 20120717, end: 20120717
  13. ACETAMINOPHEN [Concomitant]
     Indication: PYREXIA
     Dates: start: 20120809, end: 20120809
  14. ACETAMINOPHEN [Concomitant]
     Dates: start: 20120810, end: 20120810
  15. DICLOFENAC [Concomitant]
     Dates: start: 20120626, end: 20120717
  16. DASATINIB [Concomitant]
     Indication: CHRONIC MYELOID LEUKAEMIA
     Dates: start: 20120731, end: 20120803
  17. DASATINIB [Concomitant]
     Dates: start: 20120713, end: 20120714
  18. DASATINIB [Concomitant]
     Dates: start: 20120731, end: 20120731
  19. DASATINIB [Concomitant]
     Dates: start: 20120713, end: 20120714
  20. DASATINIB [Concomitant]
     Dates: start: 20120731, end: 20120803
  21. PROCHLORPERAZINE [Concomitant]
     Indication: VOMITING
     Dosage: UNK
     Dates: start: 20120716, end: 20120716
  22. CEFEPIME [Concomitant]
     Indication: SEPSIS
     Dosage: UNK
     Dates: start: 20120804, end: 20120806
  23. CEFEPIME [Concomitant]
     Dates: start: 20120804, end: 20120810
  24. ASPIRIN [Concomitant]
     Indication: THROMBOCYTOSIS
     Dates: start: 20120626, end: 20120807
  25. ESOMEPRAZOLE [Concomitant]
     Indication: PEPTIC ULCER
     Dates: start: 20120716, end: 20120718
  26. TRAMADOL [Concomitant]
     Indication: HEADACHE
     Dates: start: 20120809, end: 20120809
  27. TRAMADOL [Concomitant]
     Dates: start: 20120811, end: 20120811
  28. HYDROXYUREA [Concomitant]
     Indication: NEUTROPENIA
     Dosage: UNK
     Dates: start: 20120715, end: 20120715
  29. FUSIDATE [Concomitant]
     Dosage: UNK
     Dates: start: 20120805, end: 20120805
  30. ERYTHROMYCIN [Concomitant]
     Indication: PROPHYLAXIS
     Dates: start: 20120812, end: 20120812
  31. FENTANYL CITRATE [Concomitant]
     Dates: start: 20120812, end: 20120812
  32. POTASSIUM CHLORIDE [Concomitant]
     Dates: start: 20120811, end: 20120813
  33. NITROGLYCERIN [Concomitant]
     Indication: CHEST DISCOMFORT
     Dates: start: 20120806, end: 20120807
  34. THIAMYLAL SODIUM [Concomitant]
     Dates: start: 20120812, end: 20120812
  35. MANNITOL [Concomitant]
     Dates: start: 20120811, end: 20120812
  36. DOMPERIDONE [Concomitant]
     Indication: VOMITING
     Dates: start: 20120806, end: 20120806
  37. FAMOTIDINE [Concomitant]
     Dates: start: 20120811, end: 20120813
  38. KETOROLAC [Concomitant]
     Indication: HEADACHE
     Dates: start: 20120809, end: 20120809
  39. KETOROLAC [Concomitant]
     Indication: ABDOMINAL PAIN
  40. DIMETHYLPOLYSILOXANE [Concomitant]
     Indication: INFECTION PROPHYLAXIS
     Dates: start: 20120812, end: 20120813
  41. DIMETHYLPOLYSILOXANE [Concomitant]
     Indication: FLATULENCE
     Dates: start: 20120806, end: 20120806
  42. DOPAMINE [Concomitant]
     Indication: HYPOTENSION
     Dates: start: 20120813, end: 20120813
  43. CHLORAMPHENICOL [Concomitant]
     Indication: INFECTION PROPHYLAXIS
     Dates: start: 20120812, end: 20120812
  44. METOCLOPRAMIDE [Concomitant]
     Indication: VOMITING
     Dates: start: 20120807, end: 20120807
  45. XYLMOL [Concomitant]
     Indication: HAEMORRHOIDS
     Dates: start: 20120806, end: 20120806
  46. XYLMOL [Concomitant]
     Dates: start: 20120807, end: 20120807
  47. MAGNESIUM OXIDE [Concomitant]
     Dates: start: 20120811, end: 20120811
  48. MAGNESIUM OXIDE [Concomitant]
     Dates: start: 20120716, end: 20120722
  49. ZOLPIDEM [Concomitant]
  50. CEFAZOLIN [Concomitant]
     Dates: start: 20120812, end: 20120812
  51. DIPHENHYDRAMINE [Concomitant]
     Dosage: UNK
     Dates: start: 20120811, end: 20120811

REACTIONS (4)
  - Hypokalaemia [Unknown]
  - Hypovolaemia [Unknown]
  - Hypotension [Unknown]
  - Peptic ulcer [Unknown]
